FAERS Safety Report 18199510 (Version 3)
Quarter: 2020Q4

REPORT INFORMATION
  Report Type: Report from Study
  Country: CA (occurrence: CA)
  Receive Date: 20200826
  Receipt Date: 20201021
  Transmission Date: 20210113
  Serious: Yes (Other)
  Sender: FDA-Public Use
  Company Number: CA-ASTRAZENECA-2020SF06149

PATIENT
  Sex: Male

DRUGS (16)
  1. XARELTO [Concomitant]
     Active Substance: RIVAROXABAN
  2. FASENRA [Suspect]
     Active Substance: BENRALIZUMAB
     Indication: ASTHMA
     Dosage: 30.0MG UNKNOWN
     Route: 058
     Dates: start: 20200428
  3. PERINDOPRIL [Concomitant]
     Active Substance: PERINDOPRIL
  4. TAMSULOSIN CR [Concomitant]
     Active Substance: TAMSULOSIN
  5. MOXIFLOXACIN. [Concomitant]
     Active Substance: MOXIFLOXACIN
  6. AZITHROMYCIN ANHYDROUS. [Concomitant]
     Active Substance: AZITHROMYCIN ANHYDROUS
  7. PREDNISONE. [Concomitant]
     Active Substance: PREDNISONE
  8. SPIRIVA [Concomitant]
     Active Substance: TIOTROPIUM BROMIDE MONOHYDRATE
  9. AMOXICLAVIN [Concomitant]
  10. PULMICORT TURBUHALER [Concomitant]
     Active Substance: BUDESONIDE
  11. AMLODIPINE [Concomitant]
     Active Substance: AMLODIPINE BESYLATE
  12. RABEPRAZOLE [Concomitant]
     Active Substance: RABEPRAZOLE
  13. MONTELUKAST [Concomitant]
     Active Substance: MONTELUKAST SODIUM
  14. SYMBICORT [Concomitant]
     Active Substance: BUDESONIDE\FORMOTEROL FUMARATE DIHYDRATE
  15. ATORVASTATIN [Concomitant]
     Active Substance: ATORVASTATIN
  16. ATROVENT [Concomitant]
     Active Substance: IPRATROPIUM BROMIDE

REACTIONS (2)
  - Eye haemorrhage [Not Recovered/Not Resolved]
  - Macular degeneration [Unknown]
